FAERS Safety Report 7759882-8 (Version None)
Quarter: 2011Q3

REPORT INFORMATION
  Report Type: 
  Country: None (occurrence: None)
  Receive Date: 20110919
  Receipt Date: 20100628
  Transmission Date: 20111222
  Serious: No
  Sender: FDA-Public Use
  Company Number: US-BAYER-201028018NA

PATIENT
  Sex: Female

DRUGS (1)
  1. MIRENA [Suspect]
     Indication: CONTRACEPTION
     Dosage: UNK
     Dates: start: 20090924, end: 20100621

REACTIONS (3)
  - DEVICE EXPULSION [None]
  - ABDOMINAL PAIN LOWER [None]
  - DISCOMFORT [None]
